FAERS Safety Report 9851310 (Version 1)
Quarter: 2014Q1

REPORT INFORMATION
  Report Type: Spontaneous
  Country: CO (occurrence: CO)
  Receive Date: 20140129
  Receipt Date: 20140129
  Transmission Date: 20141002
  Serious: Yes (Life-Threatening, Other)
  Sender: FDA-Public Use
  Company Number: CO-ROCHE-1340525

PATIENT
  Age: 38 Year
  Sex: Female

DRUGS (3)
  1. XOLAIR [Suspect]
     Indication: ASTHMA
     Route: 058
     Dates: start: 20140122, end: 20140122
  2. BUDESONIDE [Concomitant]
  3. SALBUTAMOL [Concomitant]

REACTIONS (2)
  - Respiratory distress [Recovered/Resolved]
  - Laryngeal oedema [Unknown]
